FAERS Safety Report 25025041 (Version 1)
Quarter: 2025Q1

REPORT INFORMATION
  Report Type: Spontaneous
  Country: US (occurrence: None)
  Receive Date: 20250228
  Receipt Date: 20250228
  Transmission Date: 20250409
  Serious: No
  Sender: FDA-CTU
  Company Number: None

PATIENT

DRUGS (1)
  1. OCREVUS [Suspect]
     Active Substance: OCRELIZUMAB

REACTIONS (9)
  - Multiple sclerosis relapse [None]
  - Therapeutic product effect incomplete [None]
  - Influenza like illness [None]
  - Feeling abnormal [None]
  - Rash erythematous [None]
  - Rash pruritic [None]
  - Acne [None]
  - Infusion related reaction [None]
  - Drug interaction [None]
